FAERS Safety Report 7080587-3 (Version None)
Quarter: 2010Q4

REPORT INFORMATION
  Report Type: 
  Country: None (occurrence: None)
  Receive Date: 20101103
  Receipt Date: 20101020
  Transmission Date: 20110411
  Serious: Yes (Death)
  Sender: FDA-Public Use
  Company Number: US-AMGEN-USASP2010000725

PATIENT

DRUGS (1)
  1. NPLATE [Suspect]
     Dosage: 500 A?G, UNK
     Dates: start: 20100308, end: 20100323

REACTIONS (1)
  - PROSTATE CANCER [None]
